FAERS Safety Report 8766840 (Version 1)
Quarter: 2012Q4

REPORT INFORMATION
  Report Type: 
  Country: GB (occurrence: GB)
  Receive Date: 20120904
  Receipt Date: 20120904
  Transmission Date: 20130627
  Serious: Yes (Other)
  Sender: FDA-Public Use
  Company Number: GB-BAYER-2012-091071

PATIENT
  Age: 41 Year
  Sex: Female

DRUGS (1)
  1. CANESTEN INTERNAL CREAM / CANESTEN 10% VC [Suspect]
     Indication: VULVOVAGINAL CANDIDIASIS
     Dosage: UNK

REACTIONS (3)
  - Candidiasis [None]
  - Product quality issue [None]
  - Product counterfeit [None]
